FAERS Safety Report 7717696-9 (Version None)
Quarter: 2011Q3

REPORT INFORMATION
  Report Type: 
  Country: None (occurrence: None)
  Receive Date: 20110830
  Receipt Date: 20110815
  Transmission Date: 20111222
  Serious: Yes (Other)
  Sender: FDA-Public Use
  Company Number: US-UCBSA-039233

PATIENT
  Age: 53 Year
  Sex: Female
  Weight: 105 kg

DRUGS (16)
  1. KEPPRA [Suspect]
     Indication: EPILEPSY
     Dates: start: 20030602, end: 20030612
  2. HYDROXYCHLOROQUINE [Concomitant]
     Indication: LICHEN PLANUS
     Dosage: 400 MG DAILY
     Route: 048
     Dates: start: 20040620
  3. TOPAMAX [Concomitant]
     Indication: HEADACHE
     Dosage: 350 MG DAILY
     Route: 048
     Dates: start: 20031018
  4. COPAXONE [Concomitant]
     Dosage: 20 MG DAILY
     Route: 058
     Dates: start: 20051211
  5. TOPAMAX [Concomitant]
     Indication: MIGRAINE
     Dosage: 350 MG DAILY
     Route: 048
     Dates: start: 20031018
  6. TOPAMAX [Concomitant]
     Indication: CONVULSION
     Dosage: 350 MG DAILY
     Route: 048
     Dates: start: 20031018
  7. CLONAZEPAM [Concomitant]
     Indication: MUSCLE SPASTICITY
     Dosage: 0.5 MG DAILY
     Route: 048
     Dates: start: 20050628
  8. CLONAZEPAM [Concomitant]
     Indication: TREMOR
     Dosage: 0.5 MG DAILY
     Route: 048
     Dates: start: 20050628
  9. PROZAC [Concomitant]
     Indication: MULTIPLE SCLEROSIS
     Route: 048
     Dates: start: 19980422
  10. DILANTIN [Concomitant]
     Indication: GRAND MAL CONVULSION
     Route: 048
     Dates: start: 19970818
  11. VICODIN [Concomitant]
     Indication: MIGRAINE
     Dosage: 3 X 500 MG-5 MG DAILY
     Route: 048
     Dates: start: 20060617
  12. BACLOFEN [Concomitant]
     Indication: MUSCLE SPASTICITY
     Dosage: 80 MG DAILY
     Route: 048
     Dates: start: 20050922
  13. CLONAZEPAM [Concomitant]
     Indication: ANXIETY
     Dosage: 0.5 MG DAILY
     Route: 048
     Dates: start: 20050628
  14. VICODIN [Concomitant]
     Indication: PAIN
     Dosage: 3 X 500 MG-5 MG DAILY
     Route: 048
     Dates: start: 20060617
  15. ATENOLOL [Concomitant]
     Indication: CEREBROVASCULAR ARTERIOVENOUS MALFORMATION
     Route: 048
     Dates: start: 19970821
  16. PROZAC [Concomitant]
     Indication: DEPRESSED MOOD
     Route: 048
     Dates: start: 19980422

REACTIONS (3)
  - MIGRAINE [None]
  - LICHEN PLANUS [None]
  - CLUMSINESS [None]
